FAERS Safety Report 9115204 (Version 1)
Quarter: 2013Q1

REPORT INFORMATION
  Report Type: Spontaneous
  Country: US (occurrence: None)
  Receive Date: 20130220
  Receipt Date: 20130220
  Transmission Date: 20140127
  Serious: No
  Sender: FDA-Public Use
  Company Number: None

PATIENT
  Sex: Female
  Weight: 53.3 kg

DRUGS (2)
  1. CARBOPLATIN [Suspect]
     Dates: end: 20130123
  2. PACLITAXEL (TAXOL) [Suspect]
     Dates: end: 20130123

REACTIONS (1)
  - Neutropenia [None]
